FAERS Safety Report 18133253 (Version 1)
Quarter: 2020Q3

REPORT INFORMATION
  Report Type: Spontaneous
  Country: US (occurrence: US)
  Receive Date: 20200811
  Receipt Date: 20200811
  Transmission Date: 20201103
  Serious: No
  Sender: FDA-Public Use
  Company Number: US-HTU-2019US019898

PATIENT
  Sex: Male

DRUGS (1)
  1. VALCHLOR [Suspect]
     Active Substance: MECHLORETHAMINE
     Indication: CUTANEOUS T-CELL LYMPHOMA
     Dosage: THIN FILM, QD
     Route: 061

REACTIONS (6)
  - Dermatitis [Not Recovered/Not Resolved]
  - Application site discolouration [Unknown]
  - Skin weeping [Unknown]
  - Erythema [Not Recovered/Not Resolved]
  - Scab [Unknown]
  - Pruritus [Unknown]
